FAERS Safety Report 11131862 (Version 1)
Quarter: 2015Q2

REPORT INFORMATION
  Report Type: Spontaneous
  Country: NL (occurrence: None)
  Receive Date: 20150520
  Receipt Date: 20150520
  Transmission Date: 20150821
  Serious: Yes (Other)
  Sender: FDA-Public Use
  Company Number: ADR-2015-00974

PATIENT
  Age: 27 Year
  Sex: Male

DRUGS (2)
  1. SEROQUEL [Suspect]
     Active Substance: QUETIAPINE FUMARATE
     Indication: INSOMNIA
  2. BACLOFEN. [Suspect]
     Active Substance: BACLOFEN
     Indication: DRUG DEPENDENCE

REACTIONS (8)
  - Hyperhidrosis [None]
  - Off label use [None]
  - Diarrhoea [None]
  - Drug abuse [None]
  - Sedation [None]
  - Euphoric mood [None]
  - Fatigue [None]
  - Dry mouth [None]

NARRATIVE: CASE EVENT DATE: 20150223
